FAERS Safety Report 16036453 (Version 1)
Quarter: 2019Q1

REPORT INFORMATION
  Report Type: Spontaneous
  Country: US (occurrence: US)
  Receive Date: 20190305
  Receipt Date: 20190305
  Transmission Date: 20190418
  Serious: No
  Sender: FDA-Public Use
  Company Number: US-ALLERGAN-1855050US

PATIENT
  Sex: Female

DRUGS (2)
  1. ESTRACE [Suspect]
     Active Substance: ESTRADIOL
     Indication: VULVOVAGINAL DRYNESS
     Dosage: 2 G, QD
     Route: 067
     Dates: start: 201810
  2. ESTRACE [Suspect]
     Active Substance: ESTRADIOL
     Dosage: 2 G, UNK
     Route: 067
     Dates: start: 2015

REACTIONS (6)
  - Vaginal discharge [Unknown]
  - Malabsorption from application site [Unknown]
  - Vulvovaginal pruritus [Recovered/Resolved]
  - Drug ineffective [Unknown]
  - Product quality issue [Unknown]
  - Vulvovaginal discomfort [Recovered/Resolved]

NARRATIVE: CASE EVENT DATE: 2018
